FAERS Safety Report 24297672 (Version 1)
Quarter: 2024Q3

REPORT INFORMATION
  Report Type: Spontaneous
  Country: US (occurrence: US)
  Receive Date: 20240909
  Receipt Date: 20240909
  Transmission Date: 20241017
  Serious: No
  Sender: NOVARTIS
  Company Number: US-002147023-NVSC2024US180091

PATIENT
  Sex: Female

DRUGS (1)
  1. LEQVIO [Suspect]
     Active Substance: INCLISIRAN SODIUM
     Indication: Hyperlipidaemia
     Dosage: 284 MG (EVERY 6 MONTHS AFTER DAY ZERO AND MONTH THREE FIRST TWO INJECTIONS)
     Route: 058
     Dates: start: 20231006, end: 20240906

REACTIONS (2)
  - Injection site pain [Unknown]
  - Pain [Unknown]

NARRATIVE: CASE EVENT DATE: 20240906
